FAERS Safety Report 8404693-3 (Version None)
Quarter: 2012Q2

REPORT INFORMATION
  Report Type: 
  Country: None (occurrence: None)
  Receive Date: 20120601
  Receipt Date: 20120530
  Transmission Date: 20120825
  Serious: Yes (Death, Hospitalization)
  Sender: FDA-Public Use
  Company Number: FR-ROCHE-400895

PATIENT
  Sex: Male
  Weight: 67 kg

DRUGS (3)
  1. PEGASYS [Suspect]
     Indication: HEPATITIS C
     Route: 058
     Dates: start: 20040517, end: 20050322
  2. ZOLPIDEM [Concomitant]
  3. ACETAMINOPHEN [Concomitant]

REACTIONS (2)
  - PULMONARY FIBROSIS [None]
  - RESPIRATORY DISTRESS [None]
